FAERS Safety Report 21790539 (Version 1)
Quarter: 2022Q4

REPORT INFORMATION
  Report Type: Report from Study
  Country: US (occurrence: US)
  Receive Date: 20221228
  Receipt Date: 20221228
  Transmission Date: 20230113
  Serious: No
  Sender: FDA-Public Use
  Company Number: US-CLOVIS ONCOLOGY-CLO-2022-000426

PATIENT
  Sex: Female

DRUGS (2)
  1. RUBRACA [Suspect]
     Active Substance: RUCAPARIB CAMSYLATE
     Indication: Ovarian cancer
     Dosage: 600 MILLIGRAM, BID
     Dates: start: 20220120
  2. RUBRACA [Suspect]
     Active Substance: RUCAPARIB CAMSYLATE
     Dosage: 600 MILLIGRAM, BID
     Dates: start: 202106

REACTIONS (8)
  - Dry mouth [Unknown]
  - Skin laceration [Unknown]
  - Impaired healing [Unknown]
  - Blister [Unknown]
  - Dyspepsia [Unknown]
  - Diarrhoea [Not Recovered/Not Resolved]
  - Photosensitivity reaction [Unknown]
  - Fatigue [Unknown]

NARRATIVE: CASE EVENT DATE: 20220101
